FAERS Safety Report 6881836-4 (Version None)
Quarter: 2010Q3

REPORT INFORMATION
  Report Type: 
  Country: None (occurrence: None)
  Receive Date: 20100728
  Receipt Date: 20100728
  Transmission Date: 20110219
  Serious: Yes (Life-Threatening)
  Sender: FDA-Public Use
  Company Number: None

PATIENT
  Age: 77 Year
  Sex: Male
  Weight: 87.9978 kg

DRUGS (1)
  1. KAPIDEX 30MG ONCE DAILY [Suspect]

REACTIONS (1)
  - HAEMOLYTIC ANAEMIA [None]
